FAERS Safety Report 10578682 (Version 4)
Quarter: 2016Q1

REPORT INFORMATION
  Report Type: Spontaneous
  Country: US (occurrence: US)
  Receive Date: 20141112
  Receipt Date: 20160324
  Transmission Date: 20160525
  Serious: Yes (Hospitalization, Other)
  Sender: FDA-Public Use
  Company Number: US-BAYER-2014-166342

PATIENT
  Age: 42 Year
  Sex: Female
  Weight: 49.89 kg

DRUGS (8)
  1. YASMIN [Suspect]
     Active Substance: DROSPIRENONE\ETHINYL ESTRADIOL
  2. STATIN [Concomitant]
     Active Substance: UNSPECIFIED INGREDIENT
  3. ZOFRAN [Concomitant]
     Active Substance: ONDANSETRON HYDROCHLORIDE
     Indication: NAUSEA
  4. OCELLA [Suspect]
     Active Substance: DROSPIRENONE\ETHINYL ESTRADIOL
     Dosage: UNK
     Route: 048
     Dates: start: 201210, end: 201211
  5. ZYRTEC [Concomitant]
     Active Substance: CETIRIZINE HYDROCHLORIDE
  6. TRAMADOL. [Concomitant]
     Active Substance: TRAMADOL
     Indication: HEADACHE
  7. IRON SUPPLEMENT [Concomitant]
     Active Substance: IRON
  8. VYVANSE [Concomitant]
     Active Substance: LISDEXAMFETAMINE DIMESYLATE

REACTIONS (12)
  - Carotid artery thrombosis [None]
  - Pain [None]
  - Emotional distress [None]
  - Coagulopathy [None]
  - Thrombosis [None]
  - General physical health deterioration [None]
  - Depression [None]
  - Paralysis [None]
  - Embolic stroke [None]
  - Cerebrovascular accident [None]
  - Injury [None]
  - Anxiety [None]

NARRATIVE: CASE EVENT DATE: 201211
